FAERS Safety Report 7352100-4 (Version None)
Quarter: 2011Q1

REPORT INFORMATION
  Report Type: 
  Country: None (occurrence: None)
  Receive Date: 20110309
  Receipt Date: 20110309
  Transmission Date: 20110831
  Serious: Yes (Death, Hospitalization)
  Sender: FDA-Public Use
  Company Number: None

PATIENT
  Sex: Female
  Weight: 40.7 kg

DRUGS (8)
  1. CYTARABINE [Suspect]
     Dosage: 800 MG
     Dates: end: 20110221
  2. CYCLOPHOSPHAMIDE [Suspect]
     Dosage: 1370 MG
     Dates: end: 20110211
  3. DOXORUBICIN HCL [Suspect]
     Dosage: 104 MG
     Dates: end: 20110128
  4. METHOTREXATE [Suspect]
     Dosage: 45 MG
     Dates: end: 20110218
  5. PEG-L- ASPARAGINASE (PEGASPARGASE, ONCOSPAR) [Suspect]
     Dosage: 6850 IU
     Dates: end: 20110224
  6. DEXAMETHASONE [Suspect]
     Dosage: 196 MG
     Dates: end: 20110204
  7. THIOGUANINE [Suspect]
     Dosage: 1120 MG
     Dates: end: 20110224
  8. VINCRISTINE SULFATE [Suspect]
     Dosage: 4 MG
     Dates: end: 20110128

REACTIONS (2)
  - BLINDNESS [None]
  - CYANOSIS [None]
